FAERS Safety Report 5037261-4 (Version None)
Quarter: 2006Q2

REPORT INFORMATION
  Report Type: 
  Country: None (occurrence: None)
  Receive Date: 20060628
  Receipt Date: 20060620
  Transmission Date: 20061013
  Serious: Yes (Hospitalization)
  Sender: FDA-Public Use
  Company Number: JP-ROCHE-452528

PATIENT
  Age: 77 Year
  Sex: Female

DRUGS (2)
  1. PANALDINE [Suspect]
     Indication: THROMBOSIS PROPHYLAXIS
     Dosage: REPORTED INDICATION IS CEREBRAL THROMBOSIS PROPHYLAXIS
     Route: 048
     Dates: start: 20060531, end: 20060602
  2. LOCHOL [Concomitant]
     Route: 048
     Dates: start: 20060531, end: 20060602

REACTIONS (3)
  - HEPATOCELLULAR DAMAGE [None]
  - LEUKOPENIA [None]
  - LIVER DISORDER [None]
